FAERS Safety Report 6625732-6 (Version None)
Quarter: 2010Q1

REPORT INFORMATION
  Report Type: 
  Country: None (occurrence: None)
  Receive Date: 20100310
  Receipt Date: 20100225
  Transmission Date: 20100710
  Serious: Yes (Other)
  Sender: FDA-Public Use
  Company Number: JP-SANOFI-AVENTIS-2010SA010762

PATIENT
  Age: 65 Year
  Sex: Male

DRUGS (6)
  1. LASIX [Suspect]
     Route: 048
     Dates: start: 20010101
  2. ASPIRIN [Suspect]
     Route: 065
  3. WARFARIN [Concomitant]
     Route: 065
  4. OLMESARTAN MEDOXOMIL [Concomitant]
     Route: 065
  5. SUNRYTHM [Concomitant]
     Route: 065
  6. LANIRAPID [Concomitant]
     Route: 065

REACTIONS (2)
  - LUNG DISORDER [None]
  - PYREXIA [None]
